FAERS Safety Report 7224595-8 (Version None)
Quarter: 2011Q1

REPORT INFORMATION
  Report Type: 
  Country: None (occurrence: None)
  Receive Date: 20110113
  Receipt Date: 20110111
  Transmission Date: 20110831
  Serious: Yes (Other)
  Sender: FDA-Public Use
  Company Number: US-PFIZER INC-2009192235

PATIENT
  Sex: Female
  Weight: 65 kg

DRUGS (3)
  1. PREMPRO [Suspect]
     Dosage: UNK
     Dates: start: 19960101, end: 19990101
  2. PROVERA [Suspect]
     Indication: HORMONE REPLACEMENT THERAPY
     Dosage: UNK
     Route: 048
     Dates: start: 19940101, end: 19960101
  3. PREMARIN [Suspect]
     Dosage: UNK
     Dates: start: 19940101, end: 19960101

REACTIONS (1)
  - BREAST CANCER [None]
